FAERS Safety Report 25534565 (Version 1)
Quarter: 2025Q3

REPORT INFORMATION
  Report Type: Spontaneous
  Country: US (occurrence: US)
  Receive Date: 20250709
  Receipt Date: 20250709
  Transmission Date: 20251020
  Serious: Yes (Hospitalization, Other)
  Sender: AMGEN
  Company Number: US-AMGEN-USASP2025132100

PATIENT

DRUGS (1)
  1. RITUXIMAB [Suspect]
     Active Substance: RITUXIMAB
     Indication: Rheumatoid arthritis
     Route: 065

REACTIONS (5)
  - Myasthenia gravis crisis [Unknown]
  - Thymoma [Unknown]
  - Hypothyroidism [Unknown]
  - Respiratory tract infection [Unknown]
  - Hypertension [Unknown]
